FAERS Safety Report 10279660 (Version 5)
Quarter: 2015Q3

REPORT INFORMATION
  Report Type: Report from Study
  Country: US (occurrence: US)
  Receive Date: 20140707
  Receipt Date: 20150904
  Transmission Date: 20151125
  Serious: Yes (Other)
  Sender: FDA-Public Use
  Company Number: US-ASTELLAS-2014US005237

PATIENT
  Age: 13 Year
  Sex: Female

DRUGS (8)
  1. EPIPEN [Concomitant]
     Active Substance: EPINEPHRINE
     Indication: ANAPHYLACTIC REACTION
     Dosage: 0.3 ML, AS NEEDED
     Route: 030
     Dates: start: 20080123
  2. ERGOCALCIFEROL. [Concomitant]
     Active Substance: ERGOCALCIFEROL
     Indication: OSTEOPOROSIS
     Dosage: 50000 U, MONTHLY
     Route: 048
     Dates: start: 20121206
  3. DRISDOL [Concomitant]
     Active Substance: ERGOCALCIFEROL
     Indication: OSTEOPOROSIS
     Route: 048
     Dates: start: 20120706
  4. HYDROCORTISONE. [Concomitant]
     Active Substance: HYDROCORTISONE
     Indication: DERMATITIS ATOPIC
     Dosage: UNK UNK, UNKNOWN FREQ.
     Route: 061
  5. TACROLIMUS. [Suspect]
     Active Substance: TACROLIMUS
     Indication: DERMATITIS ATOPIC
     Dosage: 0.03 %, TWICE DAILY
     Route: 061
     Dates: start: 20031212, end: 2009
  6. ACID MANTLE [Concomitant]
     Indication: DERMATITIS ATOPIC
     Dosage: UNK, UNKNOWN FREQ.
     Route: 065
  7. FLUTICASONE [Concomitant]
     Active Substance: FLUTICASONE\FLUTICASONE PROPIONATE
     Indication: DERMATITIS ATOPIC
     Dosage: UNK UNK, UNKNOWN FREQ.
     Route: 061
  8. BETAMETHASONE. [Concomitant]
     Active Substance: BETAMETHASONE
     Indication: DERMATITIS ATOPIC
     Dosage: UNK UNK, UNKNOWN FREQ.
     Route: 061

REACTIONS (3)
  - VIIth nerve paralysis [Recovered/Resolved]
  - Polycystic ovaries [Not Recovered/Not Resolved]
  - Osteopenia [Recovered/Resolved]

NARRATIVE: CASE EVENT DATE: 20131217
